FAERS Safety Report 4697635-8 (Version None)
Quarter: 2005Q2

REPORT INFORMATION
  Report Type: 
  Country: None (occurrence: None)
  Receive Date: 20050620
  Receipt Date: 20040610
  Transmission Date: 20051028
  Serious: Yes (Hospitalization, Other)
  Sender: FDA-Public Use
  Company Number: 200414497US

PATIENT
  Sex: Female

DRUGS (4)
  1. LANTUS [Suspect]
     Dosage: .45 U/KG QD SC
     Route: 058
     Dates: start: 20040101
  2. LANTUS [Suspect]
     Dosage: .2 U/KG QD SC
     Route: 058
     Dates: start: 20040301
  3. LANTUS [Suspect]
     Dosage: .16 U/KG BID SC
     Route: 058
     Dates: start: 20040501, end: 20040501
  4. INTRAVENOUS FLUIDS [Concomitant]

REACTIONS (1)
  - HYPOGLYCAEMIA [None]
